FAERS Safety Report 6174740-0 (Version None)
Quarter: 2009Q2

REPORT INFORMATION
  Report Type: 
  Country: None (occurrence: None)
  Receive Date: 20090430
  Receipt Date: 20080908
  Transmission Date: 20091009
  Serious: Yes (Other)
  Sender: FDA-Public Use
  Company Number: US-ASTRAZENECA-2008UW18512

PATIENT
  Age: 77 Year
  Sex: Female
  Weight: 79.4 kg

DRUGS (4)
  1. NEXIUM [Suspect]
     Indication: EROSIVE OESOPHAGITIS
     Route: 048
     Dates: start: 20050101
  2. KEPPRA [Concomitant]
  3. DIOVAN [Concomitant]
  4. PAIN MED [Concomitant]

REACTIONS (2)
  - BARRETT'S OESOPHAGUS [None]
  - DRUG INEFFECTIVE [None]
